FAERS Safety Report 7149409-6 (Version None)
Quarter: 2010Q4

REPORT INFORMATION
  Report Type: 
  Country: None (occurrence: None)
  Receive Date: 20101209
  Receipt Date: 20101129
  Transmission Date: 20110411
  Serious: Yes (Hospitalization)
  Sender: FDA-Public Use
  Company Number: US-CELGENEUS-163-21880-10120284

PATIENT
  Sex: Female

DRUGS (7)
  1. REVLIMID [Suspect]
     Route: 048
     Dates: start: 20100604, end: 20100901
  2. REVLIMID [Suspect]
     Route: 048
     Dates: start: 20101015
  3. HYDROCHLOROTHIAZIDE [Concomitant]
     Route: 048
  4. GLYBURIDE [Concomitant]
     Route: 065
  5. AMLODIPINE [Concomitant]
     Route: 048
  6. DIOVAN [Concomitant]
     Route: 048
  7. NABUMETONE [Concomitant]
     Route: 065

REACTIONS (2)
  - FALL [None]
  - RHABDOMYOLYSIS [None]
